FAERS Safety Report 12200181 (Version 1)
Quarter: 2016Q1

REPORT INFORMATION
  Report Type: Spontaneous
  Country: US (occurrence: US)
  Receive Date: 20160322
  Receipt Date: 20160322
  Transmission Date: 20160526
  Serious: No
  Sender: FDA-Public Use
  Company Number: US-TAKEDA-2016TUS004227

PATIENT

DRUGS (2)
  1. ULORIC [Suspect]
     Active Substance: FEBUXOSTAT
     Indication: BLOOD URIC ACID INCREASED
     Dosage: 40 MG, UNK
     Route: 065
  2. ULORIC [Suspect]
     Active Substance: FEBUXOSTAT
     Dosage: 80 MG, UNK
     Route: 065

REACTIONS (1)
  - Rash [Unknown]
